FAERS Safety Report 17435085 (Version 1)
Quarter: 2020Q1

REPORT INFORMATION
  Report Type: Spontaneous
  Country: MX (occurrence: MX)
  Receive Date: 20200219
  Receipt Date: 20200219
  Transmission Date: 20200409
  Serious: Yes (Death, Other)
  Sender: FDA-Public Use
  Company Number: MX-JNJFOC-20200224732

PATIENT
  Age: 76 Year
  Sex: Female

DRUGS (1)
  1. RIVAROXABAN [Suspect]
     Active Substance: RIVAROXABAN
     Indication: PRODUCT USED FOR UNKNOWN INDICATION
     Dosage: 20 MG, QD
     Route: 048
     Dates: start: 20170523, end: 201912

REACTIONS (3)
  - Hernia repair [Unknown]
  - Gallbladder operation [Unknown]
  - Death [Fatal]

NARRATIVE: CASE EVENT DATE: 20191212
